FAERS Safety Report 9482237 (Version 1)
Quarter: 2013Q3

REPORT INFORMATION
  Report Type: Report from Study
  Country: US (occurrence: US)
  Receive Date: 20130828
  Receipt Date: 20130828
  Transmission Date: 20140515
  Serious: Yes (Other)
  Sender: FDA-Public Use
  Company Number: US-ASTELLAS-2013US009055

PATIENT
  Age: 56 Year
  Sex: Female

DRUGS (23)
  1. ERLOTINIB TABLET [Suspect]
     Indication: NON-SMALL CELL LUNG CANCER METASTATIC
     Dosage: 150 MG, UID/QD
     Route: 048
  2. ERLOTINIB TABLET [Suspect]
     Dosage: 200 MG, UID/QD
     Route: 048
  3. ERLOTINIB TABLET [Suspect]
     Dosage: 300 MG, UID/QD
     Route: 048
  4. ERLOTINIB TABLET [Suspect]
     Dosage: 350 MG, UID/QD
  5. ERLOTINIB TABLET [Suspect]
     Dosage: 300 MG, UID/QD
     Route: 048
  6. ERLOTINIB TABLET [Suspect]
     Dosage: 200 MG, UID/QD
     Route: 048
  7. CISPLATIN [Concomitant]
     Indication: PRODUCT USED FOR UNKNOWN INDICATION
     Dosage: UNK
     Route: 065
     Dates: start: 20090115, end: 20090429
  8. ABRAXANE [Concomitant]
     Indication: PRODUCT USED FOR UNKNOWN INDICATION
     Dosage: UNK
     Route: 065
     Dates: start: 20110311, end: 201108
  9. DEXAMETHASONE [Concomitant]
     Indication: PRODUCT USED FOR UNKNOWN INDICATION
     Dosage: 2 MG, Q8 HOURS, TAPER SCHEDULE
     Route: 065
  10. ALIMTA [Concomitant]
     Indication: PRODUCT USED FOR UNKNOWN INDICATION
     Dosage: UNK
     Route: 065
  11. ADVAIR [Concomitant]
     Indication: PRODUCT USED FOR UNKNOWN INDICATION
     Dosage: UNK
     Route: 065
  12. AMBIEN [Concomitant]
     Indication: PRODUCT USED FOR UNKNOWN INDICATION
     Dosage: 5 MG, UNKNOWN/D
     Route: 065
  13. EFFEXOR XR [Concomitant]
     Indication: PRODUCT USED FOR UNKNOWN INDICATION
     Dosage: 75 MG, UNKNOWN/D
     Route: 065
  14. LASIX                              /00032601/ [Concomitant]
     Indication: PRODUCT USED FOR UNKNOWN INDICATION
     Dosage: 20 MG, UNKNOWN/D
     Route: 048
  15. LEVOTHYROXINE [Concomitant]
     Indication: PRODUCT USED FOR UNKNOWN INDICATION
     Dosage: 125 UG, UNKNOWN/D
     Route: 048
  16. MIRALAX                            /00754501/ [Concomitant]
     Indication: PRODUCT USED FOR UNKNOWN INDICATION
     Dosage: UNK
     Route: 048
  17. OMEPRAZOLE [Concomitant]
     Indication: PRODUCT USED FOR UNKNOWN INDICATION
     Dosage: 40 MG, UNKNOWN/D
     Route: 048
  18. PROVENTIL HFA                      /00139501/ [Concomitant]
     Indication: PRODUCT USED FOR UNKNOWN INDICATION
     Dosage: 90 UG, UNKNOWN/D
     Route: 065
  19. REGLAN                             /00041901/ [Concomitant]
     Indication: PRODUCT USED FOR UNKNOWN INDICATION
     Dosage: 10 MG, UNKNOWN/D
     Route: 048
  20. WARFARIN SODIUM [Concomitant]
     Indication: PRODUCT USED FOR UNKNOWN INDICATION
     Dosage: 5 MG, UNKNOWN/D
     Route: 048
  21. BLACK COHOSH                       /01456801/ [Concomitant]
     Indication: PRODUCT USED FOR UNKNOWN INDICATION
     Dosage: UNK
     Route: 048
  22. PROCHLORPERAZINE MALEATE [Concomitant]
     Indication: PRODUCT USED FOR UNKNOWN INDICATION
     Dosage: 10 MG, UNKNOWN/D
     Route: 048
  23. ZOFRAN                             /00955301/ [Concomitant]
     Indication: PRODUCT USED FOR UNKNOWN INDICATION
     Dosage: 8 MG, UNKNOWN/D
     Route: 048

REACTIONS (21)
  - Superior vena cava syndrome [Unknown]
  - Carcinoembryonic antigen increased [Unknown]
  - Tooth infection [Unknown]
  - Metastases to central nervous system [Unknown]
  - Urine analysis abnormal [Unknown]
  - Salivary hypersecretion [Unknown]
  - Swelling face [Unknown]
  - Malaise [Unknown]
  - Dehydration [Unknown]
  - Dyspepsia [Unknown]
  - Abdominal pain upper [Unknown]
  - Dyspnoea exertional [Unknown]
  - Chest pain [Unknown]
  - Back pain [Unknown]
  - Abdominal pain [Unknown]
  - Fatigue [Unknown]
  - Nausea [Unknown]
  - Vomiting [Unknown]
  - Weight decreased [Unknown]
  - Fatigue [Unknown]
  - Rash [Recovered/Resolved]
